FAERS Safety Report 11394194 (Version 1)
Quarter: 2015Q3

REPORT INFORMATION
  Report Type: Spontaneous
  Country: US (occurrence: None)
  Receive Date: 20150817
  Receipt Date: 20150817
  Transmission Date: 20151125
  Serious: No
  Sender: FDA-Public Use
  Company Number: None

PATIENT
  Sex: Male

DRUGS (18)
  1. LEVOTHYROXIN [Concomitant]
     Active Substance: LEVOTHYROXINE
  2. MULTIVITAMIN [Concomitant]
     Active Substance: VITAMINS
  3. PROZAC [Concomitant]
     Active Substance: FLUOXETINE HYDROCHLORIDE
  4. IRON [Concomitant]
     Active Substance: IRON
  5. SUTENT [Concomitant]
     Active Substance: SUNITINIB MALATE
  6. LORAZEPAM. [Concomitant]
     Active Substance: LORAZEPAM
  7. FONDAPARINUX [Concomitant]
     Active Substance: FONDAPARINUX
  8. PROCHLORPER [Concomitant]
  9. COUMADIN [Concomitant]
     Active Substance: WARFARIN SODIUM
  10. INLYTA [Suspect]
     Active Substance: AXITINIB
     Indication: RENAL CANCER
     Route: 048
     Dates: start: 20150812
  11. ZOFRAN [Concomitant]
     Active Substance: ONDANSETRON HYDROCHLORIDE
  12. SPIRONOLACT [Concomitant]
  13. AUGMENTIN [Concomitant]
     Active Substance: AMOXICILLIN\CLAVULANATE POTASSIUM
  14. SUTENT [Concomitant]
     Active Substance: SUNITINIB MALATE
  15. LORAZEPAM. [Concomitant]
     Active Substance: LORAZEPAM
  16. LEVOTHYROXIN [Concomitant]
     Active Substance: LEVOTHYROXINE
  17. RANITIDINE [Concomitant]
     Active Substance: RANITIDINE\RANITIDINE HYDROCHLORIDE
  18. AMPHETAMINE [Concomitant]
     Active Substance: AMPHETAMINE

REACTIONS (1)
  - Muscle spasms [None]
